FAERS Safety Report 24296839 (Version 1)
Quarter: 2024Q3

REPORT INFORMATION
  Report Type: Other
  Country: GB (occurrence: GB)
  Receive Date: 20240909
  Receipt Date: 20240909
  Transmission Date: 20241017
  Serious: Yes (Other)
  Sender: Alora Pharma
  Company Number: GB-VERTICAL PHARMACEUTICALS-2024ALO00444

PATIENT
  Age: 56 Year
  Sex: Female
  Weight: 55 kg

DRUGS (2)
  1. DIVIGEL [Suspect]
     Active Substance: ESTRADIOL
     Indication: Hormone replacement therapy
     Dosage: 1 G
     Dates: start: 20231101, end: 20240830
  2. UTROGESTAN [Suspect]
     Active Substance: PROGESTERONE
     Indication: Hormone replacement therapy
     Dosage: 200 MG
     Dates: end: 20240830

REACTIONS (3)
  - Vaginal haemorrhage [Not Recovered/Not Resolved]
  - Uterine spasm [Not Recovered/Not Resolved]
  - Dysmenorrhoea [Unknown]

NARRATIVE: CASE EVENT DATE: 20240801
